FAERS Safety Report 4740540-9 (Version None)
Quarter: 2005Q3

REPORT INFORMATION
  Report Type: 
  Country: None (occurrence: None)
  Receive Date: 20050801
  Receipt Date: 20040819
  Transmission Date: 20060218
  Serious: Yes (Hospitalization)
  Sender: FDA-Public Use
  Company Number: 208542

PATIENT
  Age: 64 Year
  Sex: Male

DRUGS (1)
  1. RITUXAN [Suspect]
     Indication: WALDENSTROM'S MACROGLOBULINAEMIA
     Dosage: 375 MG/KG, 1/WEEK, INTRAVENOUS
     Route: 042
     Dates: start: 20030101, end: 20040601

REACTIONS (2)
  - NAIL DISORDER [None]
  - NEUROPATHY PERIPHERAL [None]
